FAERS Safety Report 23352730 (Version 1)
Quarter: 2023Q4

REPORT INFORMATION
  Report Type: Spontaneous
  Country: PT (occurrence: PT)
  Receive Date: 20231230
  Receipt Date: 20231230
  Transmission Date: 20240110
  Serious: Yes (Death, Hospitalization, Other)
  Sender: FDA-Public Use
  Company Number: PT-EPICPHARMA-PT-2023EPCLIT01860

PATIENT
  Age: 6 Decade
  Sex: Male

DRUGS (2)
  1. BUPROPION HYDROCHLORIDE [Suspect]
     Active Substance: BUPROPION HYDROCHLORIDE
     Indication: Product used for unknown indication
     Dosage: EXTENDED-RELEASE
     Route: 065
  2. BUPROPION HYDROCHLORIDE [Suspect]
     Active Substance: BUPROPION HYDROCHLORIDE
     Route: 045

REACTIONS (8)
  - Psychomotor hyperactivity [Fatal]
  - Cardio-respiratory arrest [Fatal]
  - Drug dependence [Fatal]
  - Drug abuse [Fatal]
  - Dyspnoea [Fatal]
  - Sinus tachycardia [Fatal]
  - Acute myocardial infarction [Fatal]
  - Overdose [Unknown]
